FAERS Safety Report 8933039 (Version 1)
Quarter: 2012Q4

REPORT INFORMATION
  Report Type: 
  Country: US (occurrence: US)
  Receive Date: 20121128
  Receipt Date: 20121128
  Transmission Date: 20130627
  Serious: Yes (Other)
  Sender: FDA-Public Use
  Company Number: US-BAYER-2012-124038

PATIENT
  Age: 64 Year
  Sex: Female
  Weight: 99.77 kg

DRUGS (1)
  1. BAYER ADVANCED ASPIRIN EXTRA STRENGTH [Suspect]
     Indication: BACK ACHE
     Dosage: 1 DF, UNK
     Route: 048
     Dates: end: 20121120

REACTIONS (3)
  - Nocturnal dyspnoea [Recovered/Resolved]
  - Nervousness [Recovered/Resolved]
  - Nervousness [Recovered/Resolved]
